FAERS Safety Report 7419432-2 (Version None)
Quarter: 2011Q2

REPORT INFORMATION
  Report Type: 
  Country: None (occurrence: None)
  Receive Date: 20110418
  Receipt Date: 20110407
  Transmission Date: 20111010
  Serious: Yes (Death, Life-Threatening, Hospitalization)
  Sender: FDA-Public Use
  Company Number: FR-AMGEN-FRASP2011019216

PATIENT
  Age: 72 Year
  Sex: Male
  Weight: 72 kg

DRUGS (7)
  1. ENBREL [Suspect]
     Indication: RHEUMATOID ARTHRITIS
     Dosage: 50 MG, WEEKLY
     Route: 058
     Dates: start: 20051020, end: 20110216
  2. METHOTREXATE SODIUM [Suspect]
     Indication: RHEUMATOID ARTHRITIS
     Dosage: 7.5 MG, WEEKLY
     Route: 048
     Dates: start: 20051020, end: 20060201
  3. NEXIUM [Concomitant]
     Dosage: UNK
  4. METHOTREXATE SODIUM [Suspect]
     Dosage: 20 MG, WEEKLY
     Route: 048
     Dates: start: 20060201, end: 20090401
  5. FOSAMAX [Concomitant]
     Dosage: UNK
  6. METHOTREXATE SODIUM [Suspect]
     Dosage: 10 MG, WEEKLY
     Route: 048
     Dates: start: 20090401, end: 20110216
  7. VITAMIN A [Concomitant]
     Dosage: UNK

REACTIONS (7)
  - THROMBOTIC MICROANGIOPATHY [None]
  - INSOMNIA [None]
  - METASTATIC NEOPLASM [None]
  - METASTASES TO BONE MARROW [None]
  - ANAEMIA [None]
  - BACK PAIN [None]
  - C-REACTIVE PROTEIN INCREASED [None]
